FAERS Safety Report 9357624 (Version 1)
Quarter: 2013Q2

REPORT INFORMATION
  Report Type: Spontaneous
  Country: BR (occurrence: BR)
  Receive Date: 20130620
  Receipt Date: 20130620
  Transmission Date: 20140414
  Serious: No
  Sender: FDA-Public Use
  Company Number: BR-ROCHE-1236093

PATIENT
  Age: 22 Year
  Sex: Female
  Weight: 60 kg

DRUGS (3)
  1. ROACUTAN [Suspect]
     Indication: ACNE
     Route: 065
     Dates: start: 201103
  2. ROACUTAN [Suspect]
     Route: 065
  3. ROACUTAN [Suspect]
     Route: 065
     Dates: start: 201103, end: 201201

REACTIONS (3)
  - Pregnancy [Unknown]
  - Acne [Not Recovered/Not Resolved]
  - Normal newborn [Unknown]
